FAERS Safety Report 4312190-X (Version None)
Quarter: 2004Q1

REPORT INFORMATION
  Report Type: 
  Country: None (occurrence: None)
  Receive Date: 20040303
  Receipt Date: 20040220
  Transmission Date: 20041129
  Serious: Yes (Hospitalization, Other)
  Sender: FDA-Public Use
  Company Number: 163-20785-04020683

PATIENT
  Age: 51 Year
  Sex: Male

DRUGS (1)
  1. THALIDOMIDE (THALIDOMIDE) [Suspect]
     Indication: PLASMACYTOMA

REACTIONS (5)
  - DISEASE PROGRESSION [None]
  - HEPATITIS C [None]
  - HEPATOTOXICITY [None]
  - LIVER FUNCTION TEST ABNORMAL [None]
  - VIRAL LOAD INCREASED [None]
